FAERS Safety Report 4348976-5 (Version None)
Quarter: 2004Q2

REPORT INFORMATION
  Report Type: 
  Country: None (occurrence: None)
  Receive Date: 20040423
  Receipt Date: 20040414
  Transmission Date: 20050107
  Serious: Yes (Life-Threatening, Other)
  Sender: FDA-Public Use
  Company Number: 2004-04-0040

PATIENT
  Age: 46 Year
  Sex: Male
  Weight: 85 kg

DRUGS (1)
  1. CELESTONE SOLUSPAN [Suspect]
     Indication: EPICONDYLITIS
     Dosage: 1 AMPUL INTRAMUSCULAR
     Route: 030
     Dates: start: 20040325, end: 20040326

REACTIONS (9)
  - BLOOD PRESSURE INCREASED [None]
  - FEELING ABNORMAL [None]
  - HYPERHIDROSIS [None]
  - MALAISE [None]
  - NAUSEA [None]
  - PARAESTHESIA [None]
  - PRURITUS [None]
  - RASH GENERALISED [None]
  - VISUAL ACUITY REDUCED [None]
